FAERS Safety Report 7463907-7 (Version None)
Quarter: 2011Q2

REPORT INFORMATION
  Report Type: 
  Country: None (occurrence: None)
  Receive Date: 20110506
  Receipt Date: 20110425
  Transmission Date: 20111010
  Serious: Yes (Other)
  Sender: FDA-Public Use
  Company Number: US-ASTRAZENECA-2011SE08809

PATIENT
  Age: 83 Year
  Sex: Female

DRUGS (2)
  1. IRESSA [Suspect]
     Indication: NON-SMALL CELL LUNG CANCER
     Route: 048
     Dates: end: 20070101
  2. IRESSA [Suspect]
     Route: 048
     Dates: start: 20110201

REACTIONS (7)
  - METASTASES TO SPINE [None]
  - METASTASES TO BONE [None]
  - MALAISE [None]
  - METASTASES TO EYE [None]
  - EXPIRED DRUG ADMINISTERED [None]
  - DIARRHOEA [None]
  - DISEASE PROGRESSION [None]
